FAERS Safety Report 5855113-4 (Version None)
Quarter: 2008Q3

REPORT INFORMATION
  Report Type: 
  Country: None (occurrence: None)
  Receive Date: 20080822
  Receipt Date: 20080716
  Transmission Date: 20090109
  Serious: No
  Sender: FDA-Public Use
  Company Number: US-ABBOTT-08P-163-0463430-00

PATIENT
  Sex: Female
  Weight: 49.94 kg

DRUGS (1)
  1. SYNTHROID [Suspect]
     Indication: HYPOTHYROIDISM
     Dosage: 4 PILLS AT 50 MCG
     Route: 048
     Dates: start: 19930101

REACTIONS (3)
  - ALLERGY TO CHEMICALS [None]
  - LIP SWELLING [None]
  - SWOLLEN TONGUE [None]
